FAERS Safety Report 12419692 (Version 2)
Quarter: 2016Q2

REPORT INFORMATION
  Report Type: Spontaneous
  Country: CA (occurrence: CA)
  Receive Date: 20160531
  Receipt Date: 20160613
  Transmission Date: 20160815
  Serious: Yes (Hospitalization, Other)
  Sender: FDA-Public Use
  Company Number: CA-GLAXOSMITHKLINE-A1063636A

PATIENT
  Age: 52 Year
  Sex: Female
  Weight: 110 kg

DRUGS (10)
  1. BENLYSTA [Suspect]
     Active Substance: BELIMUMAB
     Dosage: 1000 MG, CYC
     Route: 042
  2. BENLYSTA [Suspect]
     Active Substance: BELIMUMAB
     Indication: SYSTEMIC LUPUS ERYTHEMATOSUS
     Dosage: 1000 MG, EVERY 4 WEEKS X 50, 2, 4 WEEKS AND THEN EVERY 4 WEEKS
     Route: 042
     Dates: start: 20131022
  3. BENLYSTA [Suspect]
     Active Substance: BELIMUMAB
     Dosage: 970MGUNK
     Route: 042
  4. BENLYSTA [Suspect]
     Active Substance: BELIMUMAB
     Dosage: 1000 MG, CYC
     Route: 042
  5. BENLYSTA [Suspect]
     Active Substance: BELIMUMAB
     Dosage: 1000 MG, Q4 WEEKS
     Route: 042
  6. PREDNISONE. [Concomitant]
     Active Substance: PREDNISONE
     Indication: PRODUCT USED FOR UNKNOWN INDICATION
     Dosage: 30 MG, U
     Route: 048
  7. CHLOROQUINE. [Concomitant]
     Active Substance: CHLOROQUINE
     Indication: PRODUCT USED FOR UNKNOWN INDICATION
     Dosage: 250 MG, U
     Route: 048
  8. TYLENOL [Concomitant]
     Active Substance: ACETAMINOPHEN
     Indication: PRODUCT USED FOR UNKNOWN INDICATION
     Route: 048
  9. BENLYSTA [Suspect]
     Active Substance: BELIMUMAB
     Dosage: 1000 MG, Q4 WEEKS
     Route: 042
  10. INFLUENZA SHOT [Concomitant]
     Active Substance: INFLUENZA VIRUS VACCINE
     Indication: PROPHYLAXIS
     Dosage: UNK

REACTIONS (8)
  - Pneumonia [Recovered/Resolved]
  - Infection [Unknown]
  - Urinary tract infection [Recovering/Resolving]
  - Wound infection [Recovered/Resolved]
  - Nasal operation [Recovered/Resolved]
  - Device related infection [Unknown]
  - Oral infection [Unknown]
  - Sinusitis [Recovering/Resolving]

NARRATIVE: CASE EVENT DATE: 20140218
